FAERS Safety Report 6900532-8 (Version None)
Quarter: 2010Q3

REPORT INFORMATION
  Report Type: 
  Country: None (occurrence: None)
  Receive Date: 20100803
  Receipt Date: 20100726
  Transmission Date: 20110219
  Serious: Yes (Hospitalization)
  Sender: FDA-Public Use
  Company Number: ES-TEVA-242849ISR

PATIENT
  Age: 57 Year
  Sex: Male

DRUGS (1)
  1. IBUPROFEN [Suspect]

REACTIONS (1)
  - KOUNIS SYNDROME [None]
